FAERS Safety Report 9884161 (Version 3)
Quarter: 2013Q2

REPORT INFORMATION
  Report Type: Spontaneous
  Country: US (occurrence: None)
  Receive Date: 20111122
  Receipt Date: 20120703
  Transmission Date: 20140414
  Serious: Yes (Other)
  Sender: FDA-Public Use
  Company Number: PHEH2011US02842

PATIENT
  Age: 33 Year
  Sex: Female
  Weight: 54.4 kg

DRUGS (8)
  1. GILENYA [Suspect]
     Indication: MULTIPLE SCLEROSIS
     Route: 048
     Dates: start: 20110525, end: 20110831
  2. ESTRADIOL (ESTRADIOL) (GEL) [Concomitant]
  3. FLUOXETINE (FLUOXETINE) [Concomitant]
  4. PROZAC (FLUOXETINE HYDROCHLORIDE) [Concomitant]
  5. ELETRIPTAN HYDROBROMIDE (ELETRIPTAN HYDROBROMIDE) [Concomitant]
  6. MULTIVITAMINS (ASCORBIC ACID, ERGOCALCIFEROL, FOLIC ACID, NICOTINAMIDE, PANTHENOL, RETINOL, RIBOFLAVIN, THIAMINE HYDROCHLORIDE) [Concomitant]
  7. CALCIUM (CALCIUM) [Concomitant]
  8. AMBIEN (ZOLPIDEM TARTRATE) [Concomitant]

REACTIONS (3)
  - Pupillary disorder [None]
  - Vision blurred [None]
  - Burning sensation [None]
